FAERS Safety Report 6045765-0 (Version None)
Quarter: 2009Q1

REPORT INFORMATION
  Report Type: 
  Country: None (occurrence: None)
  Receive Date: 20090121
  Receipt Date: 20090114
  Transmission Date: 20090719
  Serious: Yes (Hospitalization)
  Sender: FDA-Public Use
  Company Number: US-ABBOTT-09P-163-0497759-00

PATIENT

DRUGS (1)
  1. NIASPAN [Suspect]
     Indication: BLOOD CHOLESTEROL INCREASED
     Dates: start: 20060101, end: 20090113

REACTIONS (4)
  - ABDOMINAL PAIN [None]
  - COUGH [None]
  - FLUSHING [None]
  - INTRA-ABDOMINAL HAEMATOMA [None]
